FAERS Safety Report 24197207 (Version 2)
Quarter: 2024Q3

REPORT INFORMATION
  Report Type: Spontaneous
  Country: US (occurrence: US)
  Receive Date: 20240810
  Receipt Date: 20240812
  Transmission Date: 20241017
  Serious: Yes (Other)
  Sender: AMGEN
  Company Number: US-AMGEN-USASP2024154628

PATIENT
  Sex: Female

DRUGS (4)
  1. IMDELLTRA [Suspect]
     Active Substance: TARLATAMAB-DLLE
     Indication: Small cell lung cancer
     Dosage: 1 MILLIGRAM, C1D1
     Route: 065
     Dates: start: 202407, end: 202407
  2. IMDELLTRA [Suspect]
     Active Substance: TARLATAMAB-DLLE
     Dosage: 6.6 MILLIGRAM, C1D8 (RECEIVED 66 PERCENT OF 10 MG DOSE)
     Route: 065
     Dates: start: 202407, end: 202407
  3. IMDELLTRA [Suspect]
     Active Substance: TARLATAMAB-DLLE
     Dosage: 10 MILLIGRAM, C2D1
     Route: 065
     Dates: start: 202407
  4. TORADOL [Concomitant]
     Active Substance: KETOROLAC TROMETHAMINE
     Dosage: UNK

REACTIONS (3)
  - Cytokine release syndrome [Unknown]
  - Feeling abnormal [Unknown]
  - Rash [Unknown]

NARRATIVE: CASE EVENT DATE: 20240701
